FAERS Safety Report 8049173-2 (Version None)
Quarter: 2011Q4

REPORT INFORMATION
  Report Type: 
  Country: None (occurrence: None)
  Receive Date: 20111209
  Receipt Date: 20110818
  Transmission Date: 20120403
  Serious: No
  Sender: FDA-Public Use
  Company Number: TH-2011-00334

PATIENT
  Age: 54 Year
  Sex: Male

DRUGS (2)
  1. ASPIRIN [Concomitant]
  2. EGRIFTA [Suspect]
     Indication: LIPODYSTROPHY ACQUIRED
     Dosage: 1 IN 1 D
     Dates: start: 20110801

REACTIONS (3)
  - ANGER [None]
  - INJECTION SITE HAEMATOMA [None]
  - CARPAL TUNNEL SYNDROME [None]
